FAERS Safety Report 15371013 (Version 1)
Quarter: 2018Q3

REPORT INFORMATION
  Report Type: Spontaneous
  Country: AU (occurrence: AU)
  Receive Date: 20180911
  Receipt Date: 20180911
  Transmission Date: 20181010
  Serious: Yes (Hospitalization, Other)
  Sender: FDA-Public Use
  Company Number: AU-GLAXOSMITHKLINE-AU2018GSK159726

PATIENT
  Sex: Male

DRUGS (1)
  1. TAFENOQUINE [Suspect]
     Active Substance: TAFENOQUINE
     Indication: PRODUCT USED FOR UNKNOWN INDICATION
     Dosage: UNK
     Dates: start: 20000215, end: 20000217

REACTIONS (26)
  - Anger [Not Recovered/Not Resolved]
  - Adjustment disorder [Unknown]
  - Crying [Unknown]
  - Suicide attempt [Unknown]
  - Post-traumatic stress disorder [Not Recovered/Not Resolved]
  - Nightmare [Not Recovered/Not Resolved]
  - Dissociative disorder [Not Recovered/Not Resolved]
  - Feeling of despair [Unknown]
  - Suicidal ideation [Unknown]
  - Social avoidant behaviour [Not Recovered/Not Resolved]
  - Loss of personal independence in daily activities [Unknown]
  - Irritable bowel syndrome [Not Recovered/Not Resolved]
  - Abnormal behaviour [Unknown]
  - General physical health deterioration [Unknown]
  - Social avoidant behaviour [Unknown]
  - Schizophrenia [Not Recovered/Not Resolved]
  - Amnesia [Not Recovered/Not Resolved]
  - Alcohol abuse [Unknown]
  - Injury [Unknown]
  - Bipolar disorder [Not Recovered/Not Resolved]
  - Tinnitus [Not Recovered/Not Resolved]
  - Paranoia [Not Recovered/Not Resolved]
  - Emotional distress [Unknown]
  - Asthenia [Unknown]
  - Headache [Not Recovered/Not Resolved]
  - Screaming [Unknown]
